FAERS Safety Report 12622422 (Version 1)
Quarter: 2016Q3

REPORT INFORMATION
  Report Type: Report from Study
  Country: AU (occurrence: AU)
  Receive Date: 20160804
  Receipt Date: 20160804
  Transmission Date: 20161109
  Serious: Yes (Hospitalization, Other)
  Sender: FDA-Public Use
  Company Number: PHHO2014AU019598

PATIENT
  Age: 77 Year
  Sex: Male
  Weight: 67 kg

DRUGS (19)
  1. TEMAZEPAM. [Concomitant]
     Active Substance: TEMAZEPAM
     Indication: INSOMNIA
     Dosage: 10 QD
     Route: 048
     Dates: start: 20140901, end: 20141108
  2. MAXOLON [Concomitant]
     Active Substance: METOCLOPRAMIDE HYDROCHLORIDE
     Indication: NAUSEA
     Dosage: 10 TID
     Route: 048
     Dates: start: 20141029
  3. BLOOD TRANSFUSION, AUXILIARY PRODUCTS [Concomitant]
     Active Substance: WHOLE BLOOD
     Indication: ANAEMIA
     Dosage: 2
     Route: 042
     Dates: start: 20140917, end: 20140917
  4. ONDANSETRON [Concomitant]
     Active Substance: ONDANSETRON
     Indication: NAUSEA
     Dosage: UNK
     Route: 065
     Dates: start: 20150123, end: 20150209
  5. SYMBICORT [Concomitant]
     Active Substance: BUDESONIDE\FORMOTEROL FUMARATE DIHYDRATE
     Indication: PRODUCT USED FOR UNKNOWN INDICATION
     Dosage: 2 PRN
     Route: 048
     Dates: start: 20160215
  6. EVEROLIMUS [Suspect]
     Active Substance: EVEROLIMUS
     Indication: METASTATIC RENAL CELL CARCINOMA
     Route: 065
  7. DUODART [Concomitant]
     Active Substance: DUTASTERIDE\TAMSULOSIN
     Indication: URINARY RETENTION
     Dosage: 1 U, QD
     Route: 048
     Dates: start: 20120601
  8. VIAGRA [Concomitant]
     Active Substance: SILDENAFIL CITRATE
     Indication: PRODUCT USED FOR UNKNOWN INDICATION
     Dosage: UNK
     Route: 048
     Dates: start: 20130401
  9. BLOOD TRANSFUSION, AUXILIARY PRODUCTS [Concomitant]
     Active Substance: WHOLE BLOOD
     Dosage: 2
     Route: 042
     Dates: start: 20141007, end: 20141007
  10. ALPHAMOX [Concomitant]
     Indication: RESPIRATORY TRACT INFECTION
     Dosage: 500 TID
     Route: 048
     Dates: start: 20150815, end: 20150821
  11. BIOTENE NOS [Concomitant]
     Active Substance: CETYLPYRIDINIUM CHLORIDE OR SODIUM FLUORIDE OR SODIUM MONOFLUOROPHOSPHATE OR GLUCOSE OXIDASE\LACTOFERRIN\LACTOPEROXIDASE BOVINE\LYSOZYME
     Indication: PRODUCT USED FOR UNKNOWN INDICATION
     Dosage: UNK
     Route: 065
     Dates: start: 20141015, end: 20141201
  12. OXYCONTIN [Concomitant]
     Active Substance: OXYCODONE HYDROCHLORIDE
     Indication: ANALGESIC THERAPY
     Dosage: PRN
     Route: 048
     Dates: start: 20120701, end: 20120904
  13. BLOOD TRANSFUSION, AUXILIARY PRODUCTS [Concomitant]
     Active Substance: WHOLE BLOOD
     Dosage: 2
     Route: 042
     Dates: start: 20150204, end: 20150205
  14. PAZOPANIB [Suspect]
     Active Substance: PAZOPANIB
     Indication: METASTATIC RENAL CELL CARCINOMA
     Dosage: 800 MG, QD
     Route: 048
  15. PANTOPRAZOLE SODIUM. [Concomitant]
     Active Substance: PANTOPRAZOLE SODIUM
     Indication: DYSPEPSIA
     Dosage: 40 BID
     Route: 048
     Dates: start: 20141117
  16. ENDONE [Concomitant]
     Active Substance: OXYCODONE HYDROCHLORIDE
     Indication: PAIN PROPHYLAXIS
     Dosage: 5 QID
     Route: 048
     Dates: start: 20140827, end: 20141201
  17. DEXAMETHASONE. [Concomitant]
     Active Substance: DEXAMETHASONE
     Indication: PROPHYLAXIS OF NAUSEA AND VOMITING
     Dosage: 0.5 QD
     Route: 048
     Dates: start: 20140901, end: 20140901
  18. FENTANYL TRANSDERMAL SYSTEM [Concomitant]
     Active Substance: FENTANYL
     Indication: PAIN
     Dosage: 12 Q3D
     Route: 061
     Dates: start: 20141029, end: 20141227
  19. PARACETAMOL [Concomitant]
     Active Substance: ACETAMINOPHEN
     Indication: PAIN
     Dosage: 2 PRN
     Route: 048
     Dates: start: 20150101

REACTIONS (2)
  - Volvulus [Recovered/Resolved with Sequelae]
  - Duodenitis [Recovered/Resolved]

NARRATIVE: CASE EVENT DATE: 20140814
